FAERS Safety Report 20010628 (Version 1)
Quarter: 2021Q4

REPORT INFORMATION
  Report Type: Spontaneous
  Country: RU (occurrence: RU)
  Receive Date: 20211028
  Receipt Date: 20211028
  Transmission Date: 20220304
  Serious: Yes (Life-Threatening, Other)
  Sender: FDA-Public Use
  Company Number: RU-ABBVIE-21K-251-4139039-00

PATIENT
  Age: 18 Year
  Sex: Female
  Weight: 115 kg

DRUGS (2)
  1. VALPROIC ACID [Suspect]
     Active Substance: VALPROIC ACID
     Indication: Product used for unknown indication
     Dosage: 1000/10000 UG SINGLE DOSE- 500/500 MG
     Route: 048
  2. KEPAYRA VERO [Concomitant]
     Indication: Product used for unknown indication
     Dates: start: 20190601

REACTIONS (2)
  - General physical health deterioration [Recovering/Resolving]
  - Epilepsy [Recovering/Resolving]

NARRATIVE: CASE EVENT DATE: 20190711
